FAERS Safety Report 12331313 (Version 2)
Quarter: 2016Q2

REPORT INFORMATION
  Report Type: Spontaneous
  Country: DE (occurrence: DE)
  Receive Date: 20160504
  Receipt Date: 20160512
  Transmission Date: 20160815
  Serious: Yes (Hospitalization)
  Sender: FDA-Public Use
  Company Number: DE-MERZ NORTH AMERICA, INC.-16MRZ-00263

PATIENT
  Age: 52 Year
  Sex: Female

DRUGS (2)
  1. XEOMIN [Suspect]
     Active Substance: INCOBOTULINUMTOXINA
     Indication: SKIN WRINKLING
     Dosage: (1 IN 1 TOTAL)
     Dates: start: 2015, end: 2015
  2. DURAPATITE [Concomitant]

REACTIONS (3)
  - Injection site induration [None]
  - Necrosis [None]
  - Injection site swelling [None]

NARRATIVE: CASE EVENT DATE: 201604
